FAERS Safety Report 7600795-X (Version None)
Quarter: 2011Q3

REPORT INFORMATION
  Report Type: 
  Country: None (occurrence: None)
  Receive Date: 20110711
  Receipt Date: 20110625
  Transmission Date: 20111222
  Serious: Yes (Other)
  Sender: FDA-Public Use
  Company Number: AR-GLAXOSMITHKLINE-A0933869A

PATIENT
  Sex: Female

DRUGS (2)
  1. NICOTINE [Suspect]
     Indication: SMOKING CESSATION THERAPY
     Dosage: 4MG PER DAY
     Route: 048
     Dates: start: 20110619, end: 20110624
  2. ANTICOAGULANT [Concomitant]

REACTIONS (4)
  - DISCOMFORT [None]
  - NAUSEA [None]
  - CHEST PAIN [None]
  - PNEUMONIA [None]
